FAERS Safety Report 9150048 (Version 3)
Quarter: 2013Q2

REPORT INFORMATION
  Report Type: Spontaneous
  Country: FR (occurrence: None)
  Receive Date: 20130131
  Receipt Date: 20130621
  Transmission Date: 20140414
  Serious: Yes (Hospitalization, Disabling)
  Sender: FDA-Public Use
  Company Number: 2013-0347

PATIENT
  Age: 22 Year
  Sex: Female

DRUGS (1)
  1. DYSPORT [Suspect]
     Indication: MUSCLE SPASTICITY
     Dosage: 500 UNITS (500 UNITS, 1 IN 1 CYCLE(S), INTRAMUSCULAR
     Route: 030
     Dates: start: 20121207, end: 20121207

REACTIONS (6)
  - Neurological decompensation [None]
  - Botulism [None]
  - Motor dysfunction [None]
  - Muscular weakness [None]
  - Condition aggravated [None]
  - Dysphagia [None]
